FAERS Safety Report 13627042 (Version 8)
Quarter: 2020Q2

REPORT INFORMATION
  Report Type: Report from Study
  Country: US (occurrence: US)
  Receive Date: 20170608
  Receipt Date: 20200608
  Transmission Date: 20200713
  Serious: Yes (Hospitalization)
  Sender: FDA-Public Use
  Company Number: US-UCBSA-2017016661

PATIENT
  Age: 43 Year
  Sex: Female

DRUGS (4)
  1. KEPPRA XR [Suspect]
     Active Substance: LEVETIRACETAM
     Indication: SEIZURE
     Dosage: 500 MG 4QAM AND 3QPM, 2X/DAY (BID)
     Route: 048
     Dates: start: 20130101, end: 20190325
  2. KEPPRA XR [Suspect]
     Active Substance: LEVETIRACETAM
     Indication: PARTIAL SEIZURES
     Dosage: 500 MG 4QAM AND 3QPM, 2X/DAY (BID)
     Route: 048
     Dates: start: 20130101
  3. LACOSAMIDE. [Suspect]
     Active Substance: LACOSAMIDE
     Indication: SEIZURE
  4. LACOSAMIDE. [Suspect]
     Active Substance: LACOSAMIDE
     Indication: EPILEPSY
     Dosage: 200 MG, 2X/DAY (BID) (100 MG-2QAM AND 2QPM)
     Route: 048

REACTIONS (5)
  - Intentional product misuse [Unknown]
  - Seizure [Not Recovered/Not Resolved]
  - Product availability issue [Unknown]
  - Memory impairment [Not Recovered/Not Resolved]
  - Therapy cessation [Unknown]

NARRATIVE: CASE EVENT DATE: 20170426
